FAERS Safety Report 10420959 (Version 2)
Quarter: 2014Q4

REPORT INFORMATION
  Report Type: Spontaneous
  Country: US (occurrence: None)
  Receive Date: 20140714
  Receipt Date: 20141015
  Transmission Date: 20150528
  Serious: Yes (Other)
  Sender: FDA-Public Use
  Company Number: 2014US003132

PATIENT
  Age: 75 Year
  Sex: Male
  Weight: 87 kg

DRUGS (13)
  1. CLOPIDOGREL BISULFATE. [Concomitant]
     Active Substance: CLOPIDOGREL BISULFATE
  2. NORVASC (AMLODIPINE BESILATE) TABLET [Concomitant]
  3. TASIGNA (NILOTINIB HYDROCHLORIDE) CAPSULE [Concomitant]
  4. AMLODIPINE BESYLATE TABLET [Concomitant]
  5. ATENOLOL. [Concomitant]
     Active Substance: ATENOLOL
  6. GLIMEPIRIDE TABLET [Concomitant]
     Active Substance: GLIMEPIRIDE
  7. ASPIRIN (ACETYLSALICYLIC ACID) TABLET [Concomitant]
     Active Substance: ASPIRIN
  8. NITROSTAT (GLYCERYL TRINITRATE) TABLET [Concomitant]
  9. ICLUSIG [Suspect]
     Active Substance: PONATINIB
     Indication: CHRONIC MYELOID LEUKAEMIA
     Route: 048
     Dates: start: 20140227, end: 20140313
  10. NITROGLYCERIN (GLYCERYL TRINITRATE) [Concomitant]
  11. GLEEVEC (IMATINIB MESILATE) [Concomitant]
  12. LISINOPRIL TABLET [Concomitant]
     Active Substance: LISINOPRIL
  13. SIMVASTATIN TABLET [Concomitant]

REACTIONS (7)
  - Gallbladder polyp [None]
  - Cardiac murmur [None]
  - Pancreatitis [None]
  - Back pain [None]
  - Cholelithiasis [None]
  - Blood pressure increased [None]
  - Heart rate decreased [None]

NARRATIVE: CASE EVENT DATE: 201403
